FAERS Safety Report 5622322-9 (Version None)
Quarter: 2008Q1

REPORT INFORMATION
  Report Type: 
  Country: None (occurrence: None)
  Receive Date: 20080211
  Receipt Date: 20080205
  Transmission Date: 20080703
  Serious: No
  Sender: FDA-Public Use
  Company Number: US-BAXTER-2008BH001089

PATIENT
  Age: 67 Year
  Sex: Male
  Weight: 70 kg

DRUGS (1)
  1. HEPARIN SODIUM [Suspect]
     Indication: ANTICOAGULANT THERAPY
     Dosage: DOSE UNIT:UNKNOWN
     Route: 042
     Dates: start: 20080110, end: 20080110

REACTIONS (1)
  - BLOOD PRESSURE DECREASED [None]
